FAERS Safety Report 9011084 (Version 1)
Quarter: 2013Q1

REPORT INFORMATION
  Report Type: Spontaneous
  Country: US (occurrence: US)
  Receive Date: 20130109
  Receipt Date: 20130109
  Transmission Date: 20140127
  Serious: No
  Sender: FDA-Public Use
  Company Number: US-ASTRAZENECA-2012SE94388

PATIENT
  Age: 21 Year
  Sex: Female

DRUGS (2)
  1. SEROQUEL XR [Suspect]
     Indication: BIPOLAR DISORDER
     Dosage: 50 MG DOSE DAILY AND ANOTHER DOSE WITHIN THAT 24 HOUR PERIOD BUT IT WAS 150 MGS
     Route: 048
     Dates: start: 2012
  2. SEROQUEL XR [Suspect]
     Indication: BIPOLAR DISORDER
     Route: 048
     Dates: start: 2012

REACTIONS (2)
  - Psychomotor hyperactivity [Recovering/Resolving]
  - Off label use [Unknown]
